FAERS Safety Report 8822233 (Version 4)
Quarter: 2014Q2

REPORT INFORMATION
  Report Type: Spontaneous
  Country: US (occurrence: US)
  Receive Date: 20121003
  Receipt Date: 20131024
  Transmission Date: 20141212
  Serious: No
  Sender: FDA-Public Use
  Company Number: US-PFIZER INC-2012240891

PATIENT
  Age: 58 Year
  Sex: Female
  Weight: 95.91 kg

DRUGS (4)
  1. MORPHINE SULFATE [Suspect]
     Dosage: UNK
  2. CODEINE [Suspect]
     Dosage: UNK
  3. LORTAB [Suspect]
     Dosage: UNK
  4. NAPROSYN [Suspect]
     Dosage: UNK

REACTIONS (1)
  - Drug hypersensitivity [Unknown]
